FAERS Safety Report 24711180 (Version 1)
Quarter: 2024Q4

REPORT INFORMATION
  Report Type: Spontaneous
  Country: FR (occurrence: None)
  Receive Date: 20241209
  Receipt Date: 20241209
  Transmission Date: 20250115
  Serious: Yes (Hospitalization)
  Sender: ORION
  Company Number: FR-Orion Corporation ORION PHARMA-TREX2024-0273

PATIENT
  Age: 48 Year
  Sex: Female
  Weight: 80 kg

DRUGS (3)
  1. METHOTREXATE SODIUM [Suspect]
     Active Substance: METHOTREXATE SODIUM
     Indication: Uveitis
     Dosage: STRENGTH: 2.5 MG
     Dates: start: 20220919, end: 20230320
  2. METHOTREXATE SODIUM [Suspect]
     Active Substance: METHOTREXATE SODIUM
     Dosage: STRENGTH: 2.5 MG
     Dates: start: 20230321, end: 20240103
  3. HUMIRA [Concomitant]
     Active Substance: ADALIMUMAB
     Indication: Uveitis
     Dosage: 40 MG , THEN 40MG PER WEEK FROM 05/17/2023, EVERY 2 WEEKS
     Dates: start: 20230321, end: 20240103

REACTIONS (2)
  - Triple negative breast cancer [Not Recovered/Not Resolved]
  - Product use in unapproved indication [Unknown]

NARRATIVE: CASE EVENT DATE: 20220919
